FAERS Safety Report 6424572-0 (Version None)
Quarter: 2009Q4

REPORT INFORMATION
  Report Type: 
  Country: None (occurrence: None)
  Receive Date: 20091103
  Receipt Date: 20091023
  Transmission Date: 20100525
  Serious: Yes (Other)
  Sender: FDA-Public Use
  Company Number: US-JNJFOC-20091008116

PATIENT
  Sex: Female

DRUGS (4)
  1. REMICADE [Suspect]
     Route: 042
     Dates: end: 20081201
  2. REMICADE [Suspect]
     Route: 042
     Dates: end: 20081201
  3. REMICADE [Suspect]
     Route: 042
     Dates: end: 20081201
  4. REMICADE [Suspect]
     Indication: DRUG USE FOR UNKNOWN INDICATION
     Dosage: ON INFLIXIMAB FOR ABOUT 10 YEARS
     Route: 042
     Dates: end: 20081201

REACTIONS (1)
  - CARDIAC DISORDER [None]
